FAERS Safety Report 5904926-9 (Version None)
Quarter: 2008Q3

REPORT INFORMATION
  Report Type: 
  Country: None (occurrence: None)
  Receive Date: 20080909
  Receipt Date: 20080428
  Transmission Date: 20090109
  Serious: Yes (Hospitalization)
  Sender: FDA-Public Use
  Company Number: 163-20785-08041873

PATIENT
  Age: 65 Year
  Sex: Male

DRUGS (2)
  1. THALOMID [Suspect]
     Indication: AMYLOIDOSIS
     Dosage: 200 MG, 2 IN 1 D, ORAL ; 50-200MG, DAILY, ORAL
     Route: 048
     Dates: start: 20010917, end: 20070601
  2. THALOMID [Suspect]
     Indication: AMYLOIDOSIS
     Dosage: 200 MG, 2 IN 1 D, ORAL ; 50-200MG, DAILY, ORAL
     Route: 048
     Dates: start: 20070615

REACTIONS (1)
  - CARDIAC FAILURE CONGESTIVE [None]
